FAERS Safety Report 8949859 (Version 1)
Quarter: 2012Q4

REPORT INFORMATION
  Report Type: 
  Country: DE (occurrence: DE)
  Receive Date: 20121206
  Receipt Date: 20121206
  Transmission Date: 20130627
  Serious: Yes (Other)
  Sender: FDA-Public Use
  Company Number: DE-ASTRAZENECA-2012SE90411

PATIENT
  Age: 45 Year
  Sex: Male

DRUGS (3)
  1. SEROQUEL PROLONG [Suspect]
     Route: 048
  2. LYRIKA [Concomitant]
  3. QUILONUM [Concomitant]

REACTIONS (1)
  - Cataract [Not Recovered/Not Resolved]
